FAERS Safety Report 24364632 (Version 3)
Quarter: 2025Q2

REPORT INFORMATION
  Report Type: Spontaneous
  Country: JP (occurrence: JP)
  Receive Date: 20240926
  Receipt Date: 20250424
  Transmission Date: 20250717
  Serious: Yes (Other)
  Sender: BRISTOL-MYERS SQUIBB COMPANY
  Company Number: JP-BRISTOL-MYERS SQUIBB COMPANY-2024-148989

PATIENT
  Age: 6 Decade
  Sex: Female

DRUGS (2)
  1. YERVOY [Suspect]
     Active Substance: IPILIMUMAB
     Indication: Malignant melanoma
     Route: 041
  2. OPDIVO [Suspect]
     Active Substance: NIVOLUMAB
     Indication: Malignant melanoma

REACTIONS (6)
  - Pain [Recovering/Resolving]
  - Malignant neoplasm progression [Unknown]
  - Immune-mediated lung disease [Unknown]
  - Erythema multiforme [Unknown]
  - Gene mutation identification test positive [Unknown]
  - Pyrexia [Unknown]
